FAERS Safety Report 9728169 (Version 1)
Quarter: 2013Q4

REPORT INFORMATION
  Report Type: Spontaneous
  Country: US (occurrence: None)
  Receive Date: 20131202
  Receipt Date: 20131202
  Transmission Date: 20140711
  Serious: Yes (Life-Threatening, Other)
  Sender: FDA-Public Use
  Company Number: None

PATIENT
  Age: 46 Year
  Sex: Male
  Weight: 78.02 kg

DRUGS (1)
  1. PLAVIX 75 MG [Suspect]
     Indication: CEREBROVASCULAR ACCIDENT
     Dosage: PLAVIX 75 MG, PO, LONGTERM SINCE 2002
     Route: 048

REACTIONS (3)
  - Syncope [None]
  - Product substitution issue [None]
  - Documented hypersensitivity to administered drug [None]
